FAERS Safety Report 14770727 (Version 1)
Quarter: 2018Q2

REPORT INFORMATION
  Report Type: Spontaneous
  Country: US (occurrence: US)
  Receive Date: 20180417
  Receipt Date: 20180417
  Transmission Date: 20180711
  Serious: No
  Sender: FDA-Public Use
  Company Number: US-MYLANLABS-2018M1022540

PATIENT
  Sex: Female
  Weight: 47 kg

DRUGS (1)
  1. ESTRADIOL. [Suspect]
     Active Substance: ESTRADIOL
     Indication: PRODUCT USED FOR UNKNOWN INDICATION
     Dosage: 1 DF, QW
     Route: 062

REACTIONS (3)
  - Hypersensitivity [Recovered/Resolved]
  - Application site pruritus [Recovered/Resolved]
  - Application site erythema [Recovered/Resolved]
